FAERS Safety Report 13752764 (Version 3)
Quarter: 2017Q4

REPORT INFORMATION
  Report Type: Report from Study
  Country: JP (occurrence: JP)
  Receive Date: 20170714
  Receipt Date: 20171110
  Transmission Date: 20180320
  Serious: Yes (Death)
  Sender: FDA-Public Use
  Company Number: JP-B.I. PHARMACEUTICALS,INC./RIDGEFIELD-2017-NB-003961

PATIENT
  Age: 76 Year
  Sex: Female
  Weight: 33.2 kg

DRUGS (6)
  1. GOODMIN [Concomitant]
     Active Substance: BROTIZOLAM
     Indication: INSOMNIA
     Route: 048
     Dates: start: 20170403
  2. RABEPRAZOLE NA [Concomitant]
     Active Substance: RABEPRAZOLE SODIUM
     Indication: PRODUCT USED FOR UNKNOWN INDICATION
     Route: 048
     Dates: start: 20170210
  3. ARTIST [Concomitant]
     Active Substance: CARVEDILOL
     Indication: PRODUCT USED FOR UNKNOWN INDICATION
     Route: 048
     Dates: start: 20160112
  4. FEBURIC [Concomitant]
     Active Substance: FEBUXOSTAT
     Indication: PRODUCT USED FOR UNKNOWN INDICATION
     Route: 048
     Dates: start: 20170408
  5. PRIZBIND [Suspect]
     Active Substance: IDARUCIZUMAB
     Indication: PROCOAGULANT THERAPY
     Route: 042
     Dates: start: 20170601, end: 20170601
  6. AZOSEMIDE [Concomitant]
     Active Substance: AZOSEMIDE
     Indication: PRODUCT USED FOR UNKNOWN INDICATION
     Route: 048
     Dates: start: 20170506

REACTIONS (1)
  - Pericardial effusion [Fatal]

NARRATIVE: CASE EVENT DATE: 20170614
